FAERS Safety Report 7262531-9 (Version None)
Quarter: 2011Q1

REPORT INFORMATION
  Report Type: 
  Country: None (occurrence: None)
  Receive Date: 20110130
  Receipt Date: 20101124
  Transmission Date: 20110831
  Serious: No
  Sender: FDA-Public Use
  Company Number: US-ABBOTT-10P-163-0688355-00

PATIENT
  Sex: Female
  Weight: 62.652 kg

DRUGS (6)
  1. HUMIRA [Suspect]
     Indication: CROHN'S DISEASE
     Dates: start: 20070101, end: 20070101
  2. HUMIRA [Suspect]
     Dates: start: 20070101
  3. HUMIRA [Suspect]
     Indication: CROHN'S DISEASE
     Dates: start: 20070101, end: 20070101
  4. IMURAN [Suspect]
     Indication: CROHN'S DISEASE
     Dates: end: 20100201
  5. LEVOTHROID [Concomitant]
     Indication: HYPOTHYROIDISM
  6. PRILOSEC [Concomitant]
     Indication: ILEAL ULCER

REACTIONS (5)
  - INJECTION SITE INDURATION [None]
  - FUNGAL INFECTION [None]
  - PHARYNGITIS [None]
  - INJECTION SITE ERYTHEMA [None]
  - INJECTION SITE SWELLING [None]
